FAERS Safety Report 5658975-9 (Version None)
Quarter: 2008Q1

REPORT INFORMATION
  Report Type: 
  Country: None (occurrence: None)
  Receive Date: 20080310
  Receipt Date: 20070731
  Transmission Date: 20080703
  Serious: No
  Sender: FDA-Public Use
  Company Number: US-BAYER-200711589BCC

PATIENT
  Age: 68 Year
  Sex: Male
  Weight: 108 kg

DRUGS (8)
  1. ALEVE [Suspect]
     Indication: BACK PAIN
     Dosage: UNIT DOSE: 220 MG
     Route: 048
     Dates: start: 20070513
  2. ALEVE [Suspect]
     Route: 048
  3. ASPIRIN [Concomitant]
     Indication: ISCHAEMIC HEART DISEASE PROPHYLAXIS
     Dosage: TOTAL DAILY DOSE: 325 MG  UNIT DOSE: 325 MG
  4. ACTOS [Concomitant]
  5. LIPITOR [Concomitant]
  6. GLIPIZIDE [Concomitant]
  7. GEMFIBROZIL [Concomitant]
  8. OXYGEN [Concomitant]

REACTIONS (1)
  - THROAT IRRITATION [None]
